FAERS Safety Report 6366445-8 (Version None)
Quarter: 2009Q3

REPORT INFORMATION
  Report Type: 
  Country: None (occurrence: None)
  Receive Date: 20090921
  Receipt Date: 20090909
  Transmission Date: 20100115
  Serious: No
  Sender: FDA-Public Use
  Company Number: AU-ROCHE-655614

PATIENT
  Sex: Female

DRUGS (1)
  1. ROACCUTANE [Suspect]
     Indication: DRUG USE FOR UNKNOWN INDICATION
     Dosage: LAST DOSE RECEIVED APPROXIMATELY IN JULY 2009
     Route: 065
     Dates: start: 20080101

REACTIONS (2)
  - NO ADVERSE EVENT [None]
  - PREGNANCY [None]
